FAERS Safety Report 8544552-9 (Version None)
Quarter: 2012Q3

REPORT INFORMATION
  Report Type: 
  Country: None (occurrence: None)
  Receive Date: 20120727
  Receipt Date: 20120424
  Transmission Date: 20120928
  Serious: No
  Sender: FDA-Public Use
  Company Number: US-ASTRAZENECA-2012SE26918

PATIENT
  Age: 28 Year
  Sex: Female

DRUGS (2)
  1. SEROQUEL XR [Suspect]
     Dosage: 300 MG, TWO TABLETS AT DINNER
     Route: 048
  2. SEROQUEL XR [Suspect]
     Dosage: 200 MG, ONE TABLET AT DINNER
     Route: 048

REACTIONS (2)
  - ADVERSE DRUG REACTION [None]
  - ABDOMINAL DISCOMFORT [None]
